FAERS Safety Report 5710339-5 (Version None)
Quarter: 2008Q2

REPORT INFORMATION
  Report Type: 
  Country: None (occurrence: None)
  Receive Date: 20080418
  Receipt Date: 20080407
  Transmission Date: 20081010
  Serious: Yes (Hospitalization, Other)
  Sender: FDA-Public Use
  Company Number: US-PFIZER INC-2008031384

PATIENT
  Sex: Male
  Weight: 86.363 kg

DRUGS (3)
  1. CHANTIX [Suspect]
     Indication: EX-SMOKER
     Dates: start: 20080320, end: 20080403
  2. LEVETHROID [Concomitant]
  3. ZYPREXA [Concomitant]

REACTIONS (4)
  - CONVULSION [None]
  - DRUG SCREEN POSITIVE [None]
  - DYSPNOEA [None]
  - HYPOAESTHESIA [None]
